FAERS Safety Report 4293610-6 (Version None)
Quarter: 2004Q1

REPORT INFORMATION
  Report Type: 
  Country: None (occurrence: None)
  Receive Date: 20040210
  Receipt Date: 20040130
  Transmission Date: 20041129
  Serious: Yes (Death, Life-Threatening, Hospitalization, Disabling)
  Sender: FDA-Public Use
  Company Number: GB-JNJFOC-20040200180

PATIENT
  Age: 35 Year
  Sex: Male

DRUGS (8)
  1. RISPERDAL [Suspect]
     Indication: ABNORMAL BEHAVIOUR
     Dosage: 1 MG, 5 IN 1 AS NECESSARY, ORAL
     Route: 048
     Dates: start: 20031009
  2. PREDNISOLONE [Concomitant]
  3. DIAZEPAM [Concomitant]
  4. NIFEDIPINE [Concomitant]
  5. ALENDRONIC ACID (ALENDRONIC ACID) [Concomitant]
  6. CIMETIDINE [Concomitant]
  7. ZOLDPIDEM (ZOLPIDEM) [Concomitant]
  8. ASPIRIN [Concomitant]

REACTIONS (5)
  - BRONCHOPNEUMONIA [None]
  - CEREBROVASCULAR ACCIDENT [None]
  - DYSPHAGIA [None]
  - LOSS OF CONSCIOUSNESS [None]
  - SOMNOLENCE [None]
